FAERS Safety Report 6861214-4 (Version None)
Quarter: 2010Q3

REPORT INFORMATION
  Report Type: 
  Country: None (occurrence: None)
  Receive Date: 20100720
  Receipt Date: 20100708
  Transmission Date: 20110219
  Serious: Yes (Other)
  Sender: FDA-Public Use
  Company Number: PHHY2010JP43253

PATIENT
  Age: 64 Year
  Sex: Male

DRUGS (2)
  1. CYCLOSPORINE [Suspect]
     Indication: GLOMERULONEPHRITIS CHRONIC
     Dosage: 75 MG/DAY
     Route: 048
  2. PREDNISOLONE [Concomitant]
     Indication: GLOMERULONEPHRITIS CHRONIC
     Dosage: 20 MG, UNK
     Route: 048

REACTIONS (14)
  - ABSCESS [None]
  - ABSCESS DRAINAGE [None]
  - BACK PAIN [None]
  - BRAIN ABSCESS [None]
  - CEREBELLAR ATAXIA [None]
  - CEREBELLAR HAEMORRHAGE [None]
  - DECREASED APPETITE [None]
  - DEPRESSED LEVEL OF CONSCIOUSNESS [None]
  - LUNG NEOPLASM [None]
  - MEDIASTINAL ABSCESS [None]
  - NOCARDIOSIS [None]
  - PULMONARY CAVITATION [None]
  - RETROPERITONEAL ABSCESS [None]
  - SURGERY [None]
